FAERS Safety Report 26042742 (Version 2)
Quarter: 2025Q4

REPORT INFORMATION
  Report Type: Spontaneous
  Country: US (occurrence: None)
  Receive Date: 20251113
  Receipt Date: 20251114
  Transmission Date: 20260118
  Serious: Yes (Other)
  Sender: UCB
  Company Number: 2024054513

PATIENT

DRUGS (8)
  1. BIMZELX [Suspect]
     Active Substance: BIMEKIZUMAB-BKZX
     Indication: Psoriatic arthropathy
     Dosage: UNK
  2. BIMZELX [Suspect]
     Active Substance: BIMEKIZUMAB-BKZX
     Indication: Rheumatoid arthritis
     Dosage: 320 MILLIGRAM, EV 4 WEEKS
  3. BIMZELX [Suspect]
     Active Substance: BIMEKIZUMAB-BKZX
     Indication: Psoriasis
     Dosage: 320 MILLIGRAM, EV 4 WEEKS
  4. BIMZELX [Suspect]
     Active Substance: BIMEKIZUMAB-BKZX
     Indication: Off label use
     Dosage: 320 MILLIGRAM, EV 4 WEEKS
  5. BIMZELX [Suspect]
     Active Substance: BIMEKIZUMAB-BKZX
     Dosage: 160 MILLIGRAM
  6. BIMZELX [Suspect]
     Active Substance: BIMEKIZUMAB-BKZX
     Dosage: 160 MILLIGRAM
  7. OTEZLA [Concomitant]
     Active Substance: APREMILAST
     Indication: Product used for unknown indication
  8. PROLIA [Concomitant]
     Active Substance: DENOSUMAB
     Indication: Product used for unknown indication
     Dosage: UNK

REACTIONS (8)
  - Breast reconstruction [Not Recovered/Not Resolved]
  - Psoriasis [Unknown]
  - Malaise [Unknown]
  - Exposure via skin contact [Unknown]
  - Off label use [Unknown]
  - Intentional dose omission [Unknown]
  - Device defective [Unknown]
  - Incorrect dose administered [Unknown]
